FAERS Safety Report 21579389 (Version 1)
Quarter: 2022Q4

REPORT INFORMATION
  Report Type: Spontaneous
  Country: US (occurrence: None)
  Receive Date: 20221110
  Receipt Date: 20221110
  Transmission Date: 20230112
  Serious: Yes (Other)
  Sender: FDA-Public Use
  Company Number: None

PATIENT
  Age: 70 Year
  Sex: Female
  Weight: 70.2 kg

DRUGS (11)
  1. OMNIPAQUE [Suspect]
     Active Substance: IOHEXOL
     Indication: Computerised tomogram
     Dates: start: 20221107, end: 20221107
  2. LEVOXYL [Concomitant]
  3. OMEPRAZOLE [Concomitant]
  4. TOPROL [Concomitant]
  5. Texturna [Concomitant]
  6. Probiotic [Concomitant]
  7. Lomotil [Concomitant]
  8. Dicyclomine [Concomitant]
  9. Libra [Concomitant]
  10. COENZYME Q10 [Concomitant]
     Active Substance: DIETARY SUPPLEMENT\UBIDECARENONE
  11. VITAMIN D [Concomitant]
     Active Substance: VITAMIN D NOS

REACTIONS (3)
  - Lymphadenopathy [None]
  - Salivary gland enlargement [None]
  - Aptyalism [None]

NARRATIVE: CASE EVENT DATE: 20221109
